FAERS Safety Report 23457946 (Version 2)
Quarter: 2024Q1

REPORT INFORMATION
  Report Type: Spontaneous
  Country: IT (occurrence: IT)
  Receive Date: 20240130
  Receipt Date: 20240202
  Transmission Date: 20240410
  Serious: Yes (Life-Threatening, Other)
  Sender: FDA-Public Use
  Company Number: None

PATIENT
  Age: 43 Year
  Sex: Female
  Weight: 50 kg

DRUGS (3)
  1. PACLITAXEL [Suspect]
     Active Substance: PACLITAXEL
     Indication: Breast cancer
     Dosage: 80 MG/M2 EVERY WEEK (THIS WAS THE FIRST ADMINISTRATION)
     Route: 042
     Dates: start: 20231221, end: 20231221
  2. PERTUZUMAB [Concomitant]
     Active Substance: PERTUZUMAB
     Indication: Breast cancer
     Dosage: 420 MG, LOADING DOSE 840 MG
     Route: 042
     Dates: start: 20231221, end: 20231221
  3. TRASTUZUMAB [Concomitant]
     Active Substance: TRASTUZUMAB
     Indication: Breast cancer
     Dosage: 6 MG/KG LOADING DOSE 8 MG/KG
     Dates: start: 20231221, end: 20231221

REACTIONS (2)
  - Bronchospasm [Recovered/Resolved]
  - Face oedema [Recovered/Resolved]

NARRATIVE: CASE EVENT DATE: 20231221
